FAERS Safety Report 19349255 (Version 1)
Quarter: 2021Q2

REPORT INFORMATION
  Report Type: Spontaneous
  Country: US (occurrence: US)
  Receive Date: 20210529
  Receipt Date: 20210529
  Transmission Date: 20210717
  Serious: Yes (Other)
  Sender: FDA-Public Use
  Company Number: None

PATIENT
  Age: 34 Year
  Sex: Female
  Weight: 63 kg

DRUGS (2)
  1. CLOBETASOL PROPIONATE. [Suspect]
     Active Substance: CLOBETASOL PROPIONATE
     Indication: ECZEMA
     Route: 062
     Dates: start: 20190814, end: 20200414
  2. DAILY MULTIVITAMIN [Concomitant]
     Active Substance: VITAMINS

REACTIONS (9)
  - Steroid withdrawal syndrome [None]
  - Wound [None]
  - Food allergy [None]
  - Neuralgia [None]
  - Skin weeping [None]
  - Depression suicidal [None]
  - Eczema [None]
  - Insomnia [None]
  - Skin exfoliation [None]

NARRATIVE: CASE EVENT DATE: 20200413
